FAERS Safety Report 6329884-7 (Version None)
Quarter: 2009Q3

REPORT INFORMATION
  Report Type: 
  Country: None (occurrence: None)
  Receive Date: 20090825
  Receipt Date: 20080907
  Transmission Date: 20100115
  Serious: Yes (Other)
  Sender: FDA-Public Use
  Company Number: 3336

PATIENT
  Sex: Male

DRUGS (2)
  1. COLGATE TOTAL UNSPECIFIED [Suspect]
     Indication: DENTAL PLAQUE
     Dosage: ORAL
     Route: 048
  2. COLGATE TOTAL UNSPECIFIED [Suspect]
     Indication: GINGIVITIS
     Dosage: ORAL
     Route: 048

REACTIONS (1)
  - PANCREATIC CARCINOMA [None]
